FAERS Safety Report 14963818 (Version 1)
Quarter: 2018Q2

REPORT INFORMATION
  Report Type: Spontaneous
  Country: US (occurrence: US)
  Receive Date: 20180601
  Receipt Date: 20180601
  Transmission Date: 20180711
  Serious: No
  Sender: FDA-Public Use
  Company Number: US-SA-2018SA142690

PATIENT
  Age: 45 Year
  Sex: Male
  Weight: 81.63 kg

DRUGS (19)
  1. NORMAL SALINE [Concomitant]
     Active Substance: SODIUM CHLORIDE
     Dosage: 250 ML
     Route: 041
     Dates: start: 20180405
  2. PULMICORT TURBUHALER [Concomitant]
     Active Substance: BUDESONIDE
     Dosage: 1 DF, PRN
     Route: 055
     Dates: start: 20170715
  3. LYRICA [Concomitant]
     Active Substance: PREGABALIN
     Dosage: 1 DF, TID
     Route: 048
     Dates: start: 20150731
  4. DEPAKOTE [Concomitant]
     Active Substance: DIVALPROEX SODIUM
     Dosage: 1000 MG, QD
     Route: 048
     Dates: start: 20170622
  5. VENTOLIN [SALBUTAMOL] [Concomitant]
     Dosage: 1 DF, PRN
     Route: 055
     Dates: start: 20150619
  6. DIPHENHYDRAMINE. [Concomitant]
     Active Substance: DIPHENHYDRAMINE
     Indication: ANAPHYLACTIC REACTION
     Dosage: 25 MG, PRN
     Route: 048
     Dates: start: 20150619
  7. LIGNOCAINE [LIDOCAINE] [Concomitant]
     Indication: PREMEDICATION
     Dosage: 4 %, PRN
     Route: 061
     Dates: start: 20180405
  8. STERILE WATER [Concomitant]
     Active Substance: WATER
     Dosage: 1 DF, UNK
     Route: 041
     Dates: start: 20180405
  9. IBUPROFEN. [Concomitant]
     Active Substance: IBUPROFEN
     Dosage: 200 MG, PRN
     Route: 048
     Dates: start: 20180111
  10. CALCIUM [Concomitant]
     Active Substance: CALCIUM
     Dosage: 1 DF, QD
     Route: 048
     Dates: start: 20150619
  11. SIMVASTATIN. [Concomitant]
     Active Substance: SIMVASTATIN
     Dosage: 1 DF, QD
     Route: 048
     Dates: start: 20130304
  12. FABRAZYME [Suspect]
     Active Substance: AGALSIDASE BETA
     Indication: FABRY^S DISEASE
     Dosage: 80 MG, QOW
     Route: 041
     Dates: start: 20110104
  13. EPINEPHRINE. [Concomitant]
     Active Substance: EPINEPHRINE
     Indication: ANAPHYLACTIC REACTION
     Dosage: 0.3 MG, PRN
     Route: 030
     Dates: start: 20180405
  14. MULTIVITAMINS;MINERALS [Concomitant]
     Dosage: 1 DF, QD
     Route: 048
     Dates: start: 20160715
  15. MULTIVITAMINS;MINERALS [Concomitant]
     Dosage: 1 UNK
     Route: 048
     Dates: start: 20150619
  16. ASPIRIN (E.C.) [Concomitant]
     Active Substance: ASPIRIN
     Dosage: 1 DF, QD
     Route: 048
     Dates: start: 20130304
  17. CYMBALTA [Concomitant]
     Active Substance: DULOXETINE HYDROCHLORIDE
     Dosage: 90 MG, QD
     Route: 048
     Dates: start: 20160715
  18. DRONABINOL. [Concomitant]
     Active Substance: DRONABINOL
     Dosage: 1 DF, PRN
     Route: 065
     Dates: start: 20160520
  19. SODIUM CHLORIDE. [Concomitant]
     Active Substance: SODIUM CHLORIDE
     Dosage: 0.9 %, UNK
     Route: 041
     Dates: start: 20180405

REACTIONS (1)
  - Diverticulitis [Unknown]
